FAERS Safety Report 8270350-X (Version None)
Quarter: 2012Q1

REPORT INFORMATION
  Report Type: 
  Country: None (occurrence: None)
  Receive Date: 20120327
  Receipt Date: 20100511
  Transmission Date: 20120608
  Serious: Yes (Other)
  Sender: FDA-Public Use
  Company Number: PHHY2010US03737

PATIENT
  Age: 77 Year
  Sex: Female

DRUGS (2)
  1. LASIX [Concomitant]
  2. GLEEVEC [Suspect]
     Indication: CHRONIC MYELOID LEUKAEMIA (IN REMISSION)
     Dosage: 400 MG, QD, ORAL
     Route: 048
     Dates: start: 20080124

REACTIONS (4)
  - VISUAL IMPAIRMENT [None]
  - VOMITING [None]
  - EYELID OEDEMA [None]
  - DIARRHOEA [None]
